FAERS Safety Report 19567148 (Version 1)
Quarter: 2021Q3

REPORT INFORMATION
  Report Type: Report from Study
  Country: IT (occurrence: IT)
  Receive Date: 20210716
  Receipt Date: 20210716
  Transmission Date: 20211014
  Serious: Yes (Other)
  Sender: FDA-Public Use
  Company Number: IT-ACCORD-231593

PATIENT
  Age: 67 Year
  Sex: Male
  Weight: 58 kg

DRUGS (4)
  1. FLUOROURACIL AHCL [Suspect]
     Active Substance: FLUOROURACIL
     Indication: CHOLANGIOCARCINOMA
     Dosage: STRENGTH: 50 MG/ML
     Route: 042
     Dates: start: 20210222
  2. OXALIPLATIN  ACCORD HEALTHCARE [Suspect]
     Active Substance: OXALIPLATIN
     Indication: CHOLANGIOCARCINOMA
     Route: 042
     Dates: start: 20210222
  3. CALCIUM LEVOFOLINATE TEVA [Suspect]
     Active Substance: LEVOLEUCOVORIN CALCIUM
     Indication: CHOLANGIOCARCINOMA
     Dosage: STRENGTH: 100 MG
     Route: 042
     Dates: start: 20210222
  4. FLUOROURACIL AHCL [Suspect]
     Active Substance: FLUOROURACIL
     Indication: CHOLANGIOCARCINOMA
     Dosage: STRENGTH: 50 MG/ML
     Route: 040
     Dates: start: 20210222

REACTIONS (6)
  - Asthenia [Recovering/Resolving]
  - Dysgeusia [Recovering/Resolving]
  - Oral candidiasis [Recovering/Resolving]
  - Off label use [Unknown]
  - Hypertransaminasaemia [Recovering/Resolving]
  - Nausea [Recovering/Resolving]

NARRATIVE: CASE EVENT DATE: 20210507
